FAERS Safety Report 6146598-7 (Version None)
Quarter: 2009Q2

REPORT INFORMATION
  Report Type: 
  Country: None (occurrence: None)
  Receive Date: 20090407
  Receipt Date: 20090325
  Transmission Date: 20091009
  Serious: Yes (Hospitalization)
  Sender: FDA-Public Use
  Company Number: US-ELI_LILLY_AND_COMPANY-US200903007143

PATIENT
  Sex: Female

DRUGS (6)
  1. CYMBALTA [Suspect]
     Indication: MAJOR DEPRESSION
     Dosage: 30 MG, UNK
     Route: 048
     Dates: start: 20080812
  2. CYMBALTA [Suspect]
     Dosage: 60 MG, UNK
     Dates: start: 20080901
  3. CYMBALTA [Suspect]
     Dosage: 90 MG, UNK
     Route: 048
     Dates: start: 20081001
  4. CYMBALTA [Suspect]
     Dosage: 120 MG, UNK
     Route: 048
     Dates: start: 20081101
  5. CYMBALTA [Suspect]
     Dosage: 20 MG, UNK
     Route: 048
     Dates: start: 20081201, end: 20090122
  6. KLONOPIN [Concomitant]
     Indication: PANIC DISORDER

REACTIONS (7)
  - ALANINE AMINOTRANSFERASE INCREASED [None]
  - ASPARTATE AMINOTRANSFERASE INCREASED [None]
  - JAUNDICE [None]
  - NAUSEA [None]
  - URINE COLOUR ABNORMAL [None]
  - VOMITING [None]
  - WEIGHT DECREASED [None]
